FAERS Safety Report 14694967 (Version 1)
Quarter: 2018Q1

REPORT INFORMATION
  Report Type: Spontaneous
  Country: US (occurrence: US)
  Receive Date: 20180327
  Receipt Date: 20180327
  Transmission Date: 20180509
  Serious: Yes (Hospitalization)
  Sender: FDA-Public Use
  Company Number: None

PATIENT
  Age: 67 Year
  Sex: Male

DRUGS (1)
  1. OPSUMIT [Suspect]
     Active Substance: MACITENTAN
     Indication: PULMONARY ARTERIAL HYPERTENSION
     Route: 048
     Dates: start: 20160813

REACTIONS (5)
  - Cardiac flutter [None]
  - Hypotension [None]
  - Dizziness [None]
  - Bradycardia [None]
  - Fall [None]

NARRATIVE: CASE EVENT DATE: 20180226
